FAERS Safety Report 24964788 (Version 1)
Quarter: 2025Q1

REPORT INFORMATION
  Report Type: Spontaneous
  Country: US (occurrence: None)
  Receive Date: 20250212
  Receipt Date: 20250212
  Transmission Date: 20250409
  Serious: Yes (Death)
  Sender: FDA-CTU
  Company Number: None

PATIENT
  Age: 24 Year
  Sex: Male

DRUGS (10)
  1. CINACALCET [Suspect]
     Active Substance: CINACALCET
     Indication: Hypercalcaemia
     Dosage: FREQUENCY : TWICE A DAY;?OTHER ROUTE : G-TUBE;?
     Route: 050
     Dates: start: 20241009, end: 202501
  2. SODIUM CHLORIDE [Concomitant]
     Active Substance: SODIUM CHLORIDE
  3. Ipratroplum/Albuterol lnh [Concomitant]
  4. LACOSAMIDE [Concomitant]
     Active Substance: LACOSAMIDE
  5. CLOBAZAM [Concomitant]
     Active Substance: CLOBAZAM
  6. torsemlde [Concomitant]
  7. GLYCOPYRROLATE [Concomitant]
     Active Substance: GLYCOPYRROLATE
  8. KEPPRA [Concomitant]
     Active Substance: LEVETIRACETAM
  9. levocamitine [Concomitant]
  10. Budesonlda lnh [Concomitant]

REACTIONS (1)
  - Death [None]

NARRATIVE: CASE EVENT DATE: 20250207
